FAERS Safety Report 10508714 (Version 3)
Quarter: 2015Q2

REPORT INFORMATION
  Report Type: Report from Study
  Country: GB (occurrence: GB)
  Receive Date: 20141009
  Receipt Date: 20150514
  Transmission Date: 20150821
  Serious: Yes (Hospitalization)
  Sender: FDA-Public Use
  Company Number: GB-EISAI MEDICAL RESEARCH-E7389-05343-CLI-GB

PATIENT
  Age: 66 Year
  Sex: Female
  Weight: 59 kg

DRUGS (1)
  1. ERIBULIN [Suspect]
     Active Substance: ERIBULIN
     Indication: COLON CANCER METASTATIC
     Route: 041
     Dates: start: 20140722, end: 20140722

REACTIONS (5)
  - Febrile neutropenia [Recovered/Resolved]
  - Tachycardia [Recovered/Resolved]
  - Cholecystitis acute [Recovered/Resolved]
  - Stomatitis [Recovered/Resolved]
  - Pyrexia [Recovered/Resolved]

NARRATIVE: CASE EVENT DATE: 20140722
